FAERS Safety Report 18432776 (Version 1)
Quarter: 2020Q4

REPORT INFORMATION
  Report Type: Spontaneous
  Country: US (occurrence: US)
  Receive Date: 20201027
  Receipt Date: 20201027
  Transmission Date: 20210114
  Serious: No
  Sender: FDA-Public Use
  Company Number: US-ELI_LILLY_AND_COMPANY-US202010000506

PATIENT
  Sex: Male

DRUGS (5)
  1. HUMATROPE [Suspect]
     Active Substance: SOMATROPIN
     Dosage: 2.6 MG, DAILY
     Route: 058
     Dates: start: 202009
  2. HUMATROPE [Suspect]
     Active Substance: SOMATROPIN
     Dosage: 1.3 MG, DAILY
     Route: 058
     Dates: start: 202009
  3. HUMATROPE [Suspect]
     Active Substance: SOMATROPIN
     Indication: HYPOPITUITARISM
     Dosage: (STARTING THERAPY) - ALTERNATING THIGHS AS THE PREFERRED INJECTION SITE
     Route: 058
     Dates: start: 202006
  4. HUMATROPE [Suspect]
     Active Substance: SOMATROPIN
     Indication: GROWTH HORMONE DEFICIENCY
     Dosage: 0.65 MG, DAILY
     Route: 058
     Dates: start: 202009
  5. HUMATROPE [Suspect]
     Active Substance: SOMATROPIN
     Dosage: 1.95 MG, DAILY
     Route: 058
     Dates: start: 202009

REACTIONS (2)
  - Injection site pain [Recovering/Resolving]
  - Product dose omission issue [Unknown]
